FAERS Safety Report 5373580-X (Version None)
Quarter: 2007Q2

REPORT INFORMATION
  Report Type: 
  Country: None (occurrence: None)
  Receive Date: 20070628
  Receipt Date: 20070323
  Transmission Date: 20071010
  Serious: No
  Sender: FDA-Public Use
  Company Number: US-BAUSCH-2007BL000953

PATIENT
  Age: 61 Year
  Sex: Female

DRUGS (1)
  1. ZYLET [Suspect]
     Indication: CELLULITIS ORBITAL
     Route: 047
     Dates: start: 20070202, end: 20070202

REACTIONS (1)
  - DRUG HYPERSENSITIVITY [None]
